FAERS Safety Report 4354338-7 (Version None)
Quarter: 2004Q2

REPORT INFORMATION
  Report Type: 
  Country: None (occurrence: None)
  Receive Date: 20040503
  Receipt Date: 20040427
  Transmission Date: 20050107
  Serious: Yes (Death)
  Sender: FDA-Public Use
  Company Number: 2004GB01047

PATIENT
  Age: 24 Month
  Sex: Male

DRUGS (1)
  1. LOSEC [Suspect]

REACTIONS (1)
  - SALT INTOXICATION [None]
